FAERS Safety Report 10681962 (Version 1)
Quarter: 2014Q4

REPORT INFORMATION
  Report Type: Spontaneous
  Country: JP (occurrence: JP)
  Receive Date: 20141230
  Receipt Date: 20141230
  Transmission Date: 20150529
  Serious: Yes (Hospitalization)
  Sender: FDA-Public Use
  Company Number: PHHY2014JP167090

PATIENT
  Age: 55 Year
  Sex: Male

DRUGS (1)
  1. IMUSERA [Suspect]
     Active Substance: FINGOLIMOD HYDROCHLORIDE
     Indication: MULTIPLE SCLEROSIS
     Dosage: 0.5 MG, UNK
     Route: 048
     Dates: start: 201403

REACTIONS (11)
  - Dizziness [Recovering/Resolving]
  - Hypoacusis [Recovering/Resolving]
  - C-reactive protein increased [Unknown]
  - Red blood cell sedimentation rate increased [Unknown]
  - Behcet^s syndrome [Unknown]
  - CSF cell count increased [Unknown]
  - Interleukin level increased [Unknown]
  - Gait disturbance [Unknown]
  - CSF protein increased [Unknown]
  - Pyrexia [Unknown]
  - Muscle spasticity [Unknown]

NARRATIVE: CASE EVENT DATE: 201405
